FAERS Safety Report 11264747 (Version 1)
Quarter: 2015Q3

REPORT INFORMATION
  Report Type: Spontaneous
  Country: US (occurrence: None)
  Receive Date: 20150710
  Receipt Date: 20150710
  Transmission Date: 20151125
  Serious: Yes (Other)
  Sender: FDA-Public Use
  Company Number: None

PATIENT
  Age: 54 Year
  Sex: Female

DRUGS (9)
  1. NALTREXONE (REVIA) [Concomitant]
  2. CHOLECALCIFEROL, VITAMIN D3 (VITAMIN D3) [Concomitant]
  3. CLONAZEPAM (KLONOPIN) [Concomitant]
  4. METHYLPHENIDATE(RITALIN SR) [Concomitant]
  5. CELEXA [Concomitant]
     Active Substance: CITALOPRAM HYDROBROMIDE
  6. VITAMIN B12 [Concomitant]
     Active Substance: CYANOCOBALAMIN
  7. AMPYRA [Suspect]
     Active Substance: DALFAMPRIDINE
     Indication: MULTIPLE SCLEROSIS
     Route: 048
     Dates: start: 201009
  8. LIORESAL [Concomitant]
     Active Substance: BACLOFEN
  9. TRETINOIN MICROSPHERE (RETIN-A- MICRO) [Concomitant]

REACTIONS (5)
  - Urine abnormality [None]
  - Urinary tract infection [None]
  - Bladder discomfort [None]
  - Escherichia test positive [None]
  - Pollakiuria [None]

NARRATIVE: CASE EVENT DATE: 20150623
